FAERS Safety Report 6053047-6 (Version None)
Quarter: 2009Q1

REPORT INFORMATION
  Report Type: 
  Country: None (occurrence: None)
  Receive Date: 20090122
  Receipt Date: 20090107
  Transmission Date: 20090719
  Serious: Yes (Other)
  Sender: FDA-Public Use
  Company Number: 039275

PATIENT
  Age: 25 Year
  Sex: Female

DRUGS (4)
  1. CLARAVIS [Suspect]
     Dosage: 80 MG, QD, ORAL
     Route: 048
     Dates: start: 20081020, end: 20081117
  2. CLARAVIS [Suspect]
     Dosage: 80 MG, QD, ORAL
     Route: 048
     Dates: start: 20081118, end: 20081224
  3. SOTRET [Suspect]
     Dates: start: 20080916
  4. ORAL CONTRACEPTIVE NOS (ORAL CONTRACEPTIVE NOS) [Concomitant]

REACTIONS (5)
  - DRUG DOSE OMISSION [None]
  - DRUG EXPOSURE DURING PREGNANCY [None]
  - GASTROINTESTINAL DISORDER [None]
  - UNINTENDED PREGNANCY [None]
  - VIRAL INFECTION [None]
